FAERS Safety Report 8480334-4 (Version None)
Quarter: 2012Q2

REPORT INFORMATION
  Report Type: 
  Country: None (occurrence: None)
  Receive Date: 20120630
  Receipt Date: 20120621
  Transmission Date: 20120825
  Serious: Yes (Other)
  Sender: FDA-Public Use
  Company Number: GB-TEVA-344307ISR

PATIENT
  Age: 70 Year
  Sex: Male
  Weight: 91 kg

DRUGS (8)
  1. OMACOR [Concomitant]
     Dates: start: 20120229, end: 20120609
  2. SIMVASTATIN [Concomitant]
     Dates: start: 20120229
  3. TRAMADOL HCL [Suspect]
     Dates: start: 20120611
  4. BISOPROLOL FUMARATE [Concomitant]
     Dates: start: 20111013
  5. CETIRIZINE [Concomitant]
     Dates: start: 20120229, end: 20120329
  6. KETOCONAZOLE [Concomitant]
     Dates: start: 20120430, end: 20120529
  7. METFORMIN HCL [Concomitant]
     Dates: start: 20120229
  8. LANSOPRAZOLE [Concomitant]
     Dates: start: 20120229, end: 20120529

REACTIONS (3)
  - BRADYCARDIA [None]
  - MALAISE [None]
  - DRUG INTOLERANCE [None]
